FAERS Safety Report 10052910 (Version 1)
Quarter: 2014Q2

REPORT INFORMATION
  Report Type: Spontaneous
  Country: GB (occurrence: GB)
  Receive Date: 20140402
  Receipt Date: 20140402
  Transmission Date: 20141212
  Serious: Yes (Other)
  Sender: FDA-Public Use
  Company Number: GB-BRISTOL-MYERS SQUIBB COMPANY-20552725

PATIENT
  Age: 47 Year
  Sex: Male
  Weight: 68 kg

DRUGS (8)
  1. TRIAMCINOLONE ACE INJ [Suspect]
     Indication: OSTEOARTHRITIS
     Dosage: UNSURE.
     Route: 014
     Dates: start: 201402, end: 201402
  2. RITONAVIR [Interacting]
     Indication: HIV INFECTION
     Route: 048
     Dates: start: 2005
  3. CETRIZINE [Concomitant]
  4. DARUNAVIR [Concomitant]
  5. DOMPERIDONE [Concomitant]
  6. SERTRALINE [Concomitant]
  7. TRAMADOL [Concomitant]
  8. KIVEXA [Concomitant]

REACTIONS (2)
  - Adrenal suppression [Unknown]
  - Potentiating drug interaction [Unknown]
